FAERS Safety Report 23712636 (Version 1)
Quarter: 2024Q2

REPORT INFORMATION
  Report Type: Spontaneous
  Country: PR (occurrence: PR)
  Receive Date: 20240405
  Receipt Date: 20240405
  Transmission Date: 20240715
  Serious: Yes (Other)
  Sender: FDA-Public Use
  Company Number: PR-BRISTOL-MYERS SQUIBB COMPANY-2024-049591

PATIENT
  Age: 62 Year
  Sex: Female
  Weight: 78.47 kg

DRUGS (2)
  1. REVLIMID [Suspect]
     Active Substance: LENALIDOMIDE
     Indication: Plasma cell myeloma
     Dosage: 1 CAP 14 DAYS AND 7 DAYS OFF
     Route: 048
     Dates: start: 20240304
  2. NEURONTIN [Concomitant]
     Active Substance: GABAPENTIN
     Indication: Product used for unknown indication

REACTIONS (4)
  - Mental impairment [Recovered/Resolved]
  - Incoherent [Unknown]
  - Hypersomnia [Unknown]
  - Off label use [Unknown]

NARRATIVE: CASE EVENT DATE: 20240323
